FAERS Safety Report 4438993-9 (Version None)
Quarter: 2004Q3

REPORT INFORMATION
  Report Type: 
  Country: None (occurrence: None)
  Receive Date: 20040830
  Receipt Date: 20040817
  Transmission Date: 20050211
  Serious: Yes (Death)
  Sender: FDA-Public Use
  Company Number: 2004PL000049

PATIENT
  Age: 49 Year
  Sex: Female

DRUGS (1)
  1. AZATHIOPRINE [Suspect]
     Indication: MULTIPLE SCLEROSIS
     Dosage: 45 GM; ORAL
     Route: 048

REACTIONS (4)
  - HAEMORRHAGE [None]
  - MYELODYSPLASTIC SYNDROME [None]
  - SINUS TACHYCARDIA [None]
  - SUBDURAL HAEMATOMA [None]
